FAERS Safety Report 6920823-4 (Version None)
Quarter: 2010Q3

REPORT INFORMATION
  Report Type: 
  Country: None (occurrence: None)
  Receive Date: 20100804
  Receipt Date: 20091214
  Transmission Date: 20110219
  Serious: No
  Sender: FDA-Public Use
  Company Number: 2009-5103

PATIENT
  Age: 38 Year
  Sex: Female
  Weight: 70.31 kg

DRUGS (2)
  1. SOMATULINE DEPOT [Suspect]
     Indication: BLOOD GROWTH HORMONE ABNORMAL
     Dosage: (90 MG, 1 IN 1 M), SUBCUTANEOUS
     Route: 058
     Dates: start: 20091212
  2. SOMATULINE DEPOT [Suspect]
     Indication: INSULIN-LIKE GROWTH FACTOR DECREASED
     Dosage: (90 MG, 1 IN 1 M), SUBCUTANEOUS
     Route: 058
     Dates: start: 20091212

REACTIONS (2)
  - ABDOMINAL PAIN [None]
  - MYALGIA [None]
